FAERS Safety Report 19656614 (Version 7)
Quarter: 2022Q2

REPORT INFORMATION
  Report Type: Report from Study
  Country: US (occurrence: US)
  Receive Date: 20210804
  Receipt Date: 20220516
  Transmission Date: 20220720
  Serious: Yes (Hospitalization, Disabling, Other)
  Sender: FDA-Public Use
  Company Number: US-SANOFI-00555884

PATIENT
  Age: 67 Year
  Sex: Female

DRUGS (8)
  1. DUPILUMAB [Suspect]
     Active Substance: DUPILUMAB
     Indication: Dermatitis atopic
     Dosage: 600 MG, 1X
     Route: 058
     Dates: start: 20210331
  2. DUPILUMAB [Suspect]
     Active Substance: DUPILUMAB
     Dosage: 300 MG, QOW
     Route: 058
     Dates: start: 20210414, end: 2021
  3. DUPILUMAB [Suspect]
     Active Substance: DUPILUMAB
     Dosage: 300 MG, QOW
     Route: 058
     Dates: start: 20210521
  4. CARAFATE [Concomitant]
     Active Substance: SUCRALFATE
  5. OXYCODONE [Concomitant]
     Active Substance: OXYCODONE
  6. TYLENOL [Concomitant]
     Active Substance: ACETAMINOPHEN
  7. AUGMENTIN [Concomitant]
     Active Substance: AMOXICILLIN\CLAVULANATE POTASSIUM
  8. UNSPECIFIED INGREDIENT [Concomitant]
     Active Substance: UNSPECIFIED INGREDIENT
     Indication: Upper respiratory tract infection

REACTIONS (23)
  - Impaired driving ability [Not Recovered/Not Resolved]
  - Fall [Unknown]
  - Head injury [Not Recovered/Not Resolved]
  - Meniere^s disease [Not Recovered/Not Resolved]
  - Near death experience [Recovered/Resolved]
  - Vertigo [Not Recovered/Not Resolved]
  - Oesophageal perforation [Unknown]
  - Oesophageal rupture [Unknown]
  - Sepsis [Unknown]
  - Peritonitis [Unknown]
  - Pneumonia [Recovered/Resolved]
  - Oesophageal stent removal [Unknown]
  - Dermatitis acneiform [Unknown]
  - Vomiting [Unknown]
  - Pain [Not Recovered/Not Resolved]
  - Weight decreased [Unknown]
  - Upper respiratory tract infection [Unknown]
  - Bronchitis [Recovering/Resolving]
  - Illness [Unknown]
  - Rash [Recovering/Resolving]
  - Product dose omission issue [Unknown]
  - Therapeutic response decreased [Unknown]
  - Product administered at inappropriate site [Unknown]

NARRATIVE: CASE EVENT DATE: 20210101
